FAERS Safety Report 7410355-1 (Version None)
Quarter: 2011Q2

REPORT INFORMATION
  Report Type: 
  Country: None (occurrence: None)
  Receive Date: 20110412
  Receipt Date: 20090318
  Transmission Date: 20111010
  Serious: Yes (Other)
  Sender: FDA-Public Use
  Company Number: DE-GENENTECH-316488

PATIENT
  Age: 92 Year
  Sex: Male

DRUGS (2)
  1. VITALUX PLUS [Concomitant]
     Indication: PRODUCT USED FOR UNKNOWN INDICATION
  2. LUCENTIS [Suspect]
     Indication: MACULAR DEGENERATION
     Dosage: UNK
     Route: 031
     Dates: start: 20090121

REACTIONS (7)
  - MACULAR SCAR [None]
  - VISUAL ACUITY REDUCED [None]
  - RETINAL HAEMORRHAGE [None]
  - VISUAL IMPAIRMENT [None]
  - CORNEAL ABRASION [None]
  - EYE HAEMORRHAGE [None]
  - SUDDEN VISUAL LOSS [None]
